FAERS Safety Report 24978000 (Version 2)
Quarter: 2025Q1

REPORT INFORMATION
  Report Type: Spontaneous
  Country: US (occurrence: US)
  Receive Date: 20250217
  Receipt Date: 20250331
  Transmission Date: 20250408
  Serious: No
  Sender: IPSEN BIOPHARMACEUTICALS, INC.
  Company Number: US-IPSEN Group, Research and Development-2025-03650

PATIENT
  Age: 65 Year
  Sex: Male

DRUGS (1)
  1. DYSPORT [Suspect]
     Active Substance: ABOBOTULINUMTOXINA
     Indication: Hereditary spastic paraplegia
     Route: 030
     Dates: start: 20240606, end: 20240606

REACTIONS (2)
  - Foot fracture [Unknown]
  - Fall [Unknown]
